FAERS Safety Report 9681183 (Version 2)
Quarter: 2013Q4

REPORT INFORMATION
  Report Type: Spontaneous
  Country: CH (occurrence: CH)
  Receive Date: 20131111
  Receipt Date: 20131120
  Transmission Date: 20140711
  Serious: Yes (Hospitalization)
  Sender: FDA-Public Use
  Company Number: CH-ELI_LILLY_AND_COMPANY-CH201311001110

PATIENT
  Age: 65 Year
  Sex: Male
  Weight: 85 kg

DRUGS (4)
  1. EFIENT [Suspect]
     Indication: ANGINA PECTORIS
     Dosage: 60 MG, SINGLE
     Route: 048
     Dates: start: 20110921
  2. EFIENT [Suspect]
     Indication: MYOCARDIAL ISCHAEMIA
     Dosage: 10 MG, QD
     Route: 048
     Dates: end: 20111019
  3. ASPIRIN [Concomitant]
     Indication: ANGINA PECTORIS
     Dosage: LOADING DOSE 300-500MG
     Route: 048
  4. ASPIRIN [Concomitant]
     Dosage: 100 MG, QD
     Route: 048

REACTIONS (2)
  - Cardiac failure congestive [Recovering/Resolving]
  - Device occlusion [Unknown]
